FAERS Safety Report 9656742 (Version 1)
Quarter: 2013Q4

REPORT INFORMATION
  Report Type: Spontaneous
  Country: US (occurrence: US)
  Receive Date: 20131030
  Receipt Date: 20131030
  Transmission Date: 20140711
  Serious: No
  Sender: FDA-Public Use
  Company Number: US-TEVA-440974USA

PATIENT
  Sex: Female
  Weight: 54.48 kg

DRUGS (1)
  1. PROAIR HFA [Suspect]
     Indication: ASTHMA
     Dosage: 3 PUFFS AT NIGHT

REACTIONS (3)
  - Weight increased [Unknown]
  - Dyspnoea [Unknown]
  - Rhinitis [Unknown]
